FAERS Safety Report 8230958-4 (Version None)
Quarter: 2012Q1

REPORT INFORMATION
  Report Type: 
  Country: None (occurrence: None)
  Receive Date: 20120323
  Receipt Date: 20120321
  Transmission Date: 20120608
  Serious: Yes (Life-Threatening)
  Sender: FDA-Public Use
  Company Number: KR-SANOFI-AVENTIS-2012SA019630

PATIENT

DRUGS (1)
  1. ELOXATIN [Suspect]
     Route: 042

REACTIONS (2)
  - METABOLIC ACIDOSIS [None]
  - COMA [None]
